FAERS Safety Report 8624165 (Version 4)
Quarter: 2013Q1

REPORT INFORMATION
  Report Type: Spontaneous
  Country: US (occurrence: US)
  Receive Date: 20120620
  Receipt Date: 20130318
  Transmission Date: 20140127
  Serious: Yes (Other)
  Sender: FDA-Public Use
  Company Number: US-ROCHE-1078153

PATIENT
  Age: 16 Year
  Sex: Male
  Weight: 60.38 kg

DRUGS (3)
  1. ACCUTANE [Suspect]
     Indication: ACNE
     Dosage: 40 MG AND 20 MG EVERY DAY
     Route: 048
     Dates: start: 20090223, end: 200909
  2. ACCUTANE [Suspect]
     Route: 048
     Dates: end: 20091031
  3. CLARAVIS [Suspect]
     Indication: PRODUCT USED FOR UNKNOWN INDICATION
     Route: 065
     Dates: start: 20091031, end: 20100615

REACTIONS (8)
  - Colitis ulcerative [Unknown]
  - Crohn^s disease [Unknown]
  - Inflammatory bowel disease [Unknown]
  - Anxiety [Unknown]
  - Irritable bowel syndrome [Unknown]
  - Depression [Not Recovered/Not Resolved]
  - Aspartate aminotransferase increased [Unknown]
  - Eczema nummular [Unknown]
